FAERS Safety Report 5042909-4 (Version None)
Quarter: 2006Q3

REPORT INFORMATION
  Report Type: 
  Country: None (occurrence: None)
  Receive Date: 20060705
  Receipt Date: 20020215
  Transmission Date: 20061208
  Serious: Yes (Life-Threatening)
  Sender: FDA-Public Use
  Company Number: FR-ROCHE-307176

PATIENT
  Age: 63 Year
  Sex: Female
  Weight: 117 kg

DRUGS (6)
  1. HYPNOVEL [Suspect]
     Indication: ANAESTHESIA
     Route: 042
     Dates: start: 20010608, end: 20010610
  2. AUGMENTIN '125' [Suspect]
     Indication: DRUG USE FOR UNKNOWN INDICATION
     Route: 042
     Dates: start: 20010608, end: 20010608
  3. AUGMENTIN '125' [Suspect]
     Route: 042
     Dates: start: 20010609, end: 20010609
  4. AUGMENTIN '125' [Suspect]
     Route: 042
     Dates: start: 20010610, end: 20010610
  5. NORCURON [Concomitant]
     Route: 042
     Dates: start: 20010608, end: 20010608
  6. FENTANYL CITRATE [Concomitant]
     Route: 042
     Dates: start: 20010608, end: 20010608

REACTIONS (6)
  - ANAPHYLACTIC SHOCK [None]
  - CAPILLARY LEAK SYNDROME [None]
  - DISSEMINATED INTRAVASCULAR COAGULATION [None]
  - EXTRAVASATION [None]
  - TACHYCARDIA [None]
  - WEIGHT INCREASED [None]
